FAERS Safety Report 6731189-7 (Version None)
Quarter: 2010Q2

REPORT INFORMATION
  Report Type: 
  Country: None (occurrence: None)
  Receive Date: 20100518
  Receipt Date: 20100505
  Transmission Date: 20101027
  Serious: Yes (Hospitalization)
  Sender: FDA-Public Use
  Company Number: ES-ELI_LILLY_AND_COMPANY-ES201005001501

PATIENT
  Sex: Female
  Weight: 55 kg

DRUGS (7)
  1. FORTEO [Suspect]
     Indication: OSTEOPOROSIS
     Dosage: 20 UG, DAILY (1/D)
     Route: 058
     Dates: start: 20081218
  2. ASTUDAL [Concomitant]
     Indication: HYPERTENSION
     Dosage: 5 MG, DAILY (1/D)
     Route: 048
  3. DISGREN [Concomitant]
     Indication: BLOOD PRESSURE MANAGEMENT
     Dosage: 300 MG, DAILY (1/D)
     Route: 048
  4. SPIRIVA [Concomitant]
     Indication: ASTHMA
     Dosage: UNK, 1 PUFF DAILY (1/D)
     Route: 055
  5. PLUSVENT [Concomitant]
     Indication: ASTHMA
     Dosage: UNK, 1 PUFF DAILY (1/D)
     Route: 055
  6. OMEPRAZOLE [Concomitant]
     Indication: ABDOMINAL PAIN UPPER
     Dosage: 20 MG, DAILY (1/D)
     Route: 048
  7. CALCIO [Concomitant]
     Indication: OSTEOPOROSIS
     Dosage: UNK, 1 TABLET 2/D
     Route: 048

REACTIONS (3)
  - ANAEMIA [None]
  - BILIARY COLIC [None]
  - JAUNDICE [None]
